FAERS Safety Report 9014775 (Version 2)
Quarter: 2013Q1

REPORT INFORMATION
  Report Type: Report from Study
  Country: BE (occurrence: DE)
  Receive Date: 20130115
  Receipt Date: 20130204
  Transmission Date: 20140127
  Serious: Yes (Disabling)
  Sender: FDA-Public Use
  Company Number: BE-009507513-1301DEU005320

PATIENT
  Age: 69 Year
  Sex: Female

DRUGS (2)
  1. INVANZ [Suspect]
     Indication: LARGE INTESTINAL OBSTRUCTION
     Dosage: UNK
     Route: 042
     Dates: start: 20070106, end: 20070108
  2. PERFUSALGAN [Concomitant]
     Indication: PAIN PROPHYLAXIS
     Dosage: UNK
     Dates: start: 20070106

REACTIONS (1)
  - Peritonitis [Recovered/Resolved]
